FAERS Safety Report 6221561-6 (Version None)
Quarter: 2009Q2

REPORT INFORMATION
  Report Type: 
  Country: None (occurrence: None)
  Receive Date: 20090608
  Receipt Date: 20090526
  Transmission Date: 20091009
  Serious: Yes (Life-Threatening, Hospitalization)
  Sender: FDA-Public Use
  Company Number: GXKR2009IT06179

PATIENT
  Age: 42 Year
  Sex: Female

DRUGS (6)
  1. METFORMIN HCL [Suspect]
     Indication: TYPE 2 DIABETES MELLITUS
     Dosage: 1500 MG/DAY,
  2. VALPROIC ACID [Concomitant]
  3. CITALOPRAM HYDROBROMIDE [Concomitant]
  4. ANALGESICS (NO INGREDIENTS/SUBSTANCES) [Concomitant]
  5. ANTIEMETICS (NO INGREDIENTS/SUBSTANCES) [Concomitant]
  6. ALCOHOL (ETHANOL) [Concomitant]

REACTIONS (18)
  - ACUTE RESPIRATORY DISTRESS SYNDROME [None]
  - ALCOHOL POISONING [None]
  - BLOOD POTASSIUM INCREASED [None]
  - BLOOD SODIUM INCREASED [None]
  - COMA [None]
  - CONTINUOUS HAEMODIAFILTRATION [None]
  - HEADACHE [None]
  - HEPATIC FAILURE [None]
  - HYPERNATRAEMIA [None]
  - HYPEROSMOLAR STATE [None]
  - LACTIC ACIDOSIS [None]
  - NAUSEA [None]
  - PANCREATIC INJURY [None]
  - PNEUMONIA [None]
  - RENAL FAILURE [None]
  - RHABDOMYOLYSIS [None]
  - SHOCK [None]
  - VOMITING [None]
